FAERS Safety Report 5662331-7 (Version None)
Quarter: 2008Q1

REPORT INFORMATION
  Report Type: 
  Country: None (occurrence: None)
  Receive Date: 20080312
  Receipt Date: 20080229
  Transmission Date: 20080703
  Serious: Yes (Other)
  Sender: FDA-Public Use
  Company Number: GB-PFIZER INC-2008019773

PATIENT
  Age: 80 Year
  Sex: Female
  Weight: 43.6 kg

DRUGS (9)
  1. CHANTIX [Suspect]
     Dosage: DAILY DOSE:1MG-TEXT:1MG
     Route: 048
     Dates: start: 20071001, end: 20071220
  2. ASPIRIN [Concomitant]
  3. LACTULOSE [Concomitant]
  4. MORPHINE [Concomitant]
  5. MOVICOL [Concomitant]
  6. NITRAZEPAM [Concomitant]
  7. ACETAMINOPHEN [Concomitant]
  8. QUININE [Concomitant]
  9. SIMVASTATIN [Concomitant]

REACTIONS (2)
  - DEHYDRATION [None]
  - VOMITING [None]
